FAERS Safety Report 6623448-3 (Version None)
Quarter: 2010Q1

REPORT INFORMATION
  Report Type: 
  Country: None (occurrence: None)
  Receive Date: 20100310
  Receipt Date: 20100301
  Transmission Date: 20100710
  Serious: Yes (Other)
  Sender: FDA-Public Use
  Company Number: US-JNJFOC-20091206450

PATIENT
  Sex: Female
  Weight: 143.79 kg

DRUGS (23)
  1. DURAGESIC-100 [Suspect]
     Indication: FIBROMYALGIA
     Route: 062
  2. DURAGESIC-100 [Suspect]
     Route: 062
  3. PLAQUENIL [Concomitant]
     Route: 065
  4. PLAQUENIL [Concomitant]
     Route: 065
  5. NEXIUM [Concomitant]
     Route: 065
  6. POTASSIUM [Concomitant]
     Route: 065
  7. WELLBUTRIN [Concomitant]
     Route: 065
  8. WELLBUTRIN [Concomitant]
     Route: 065
  9. CELEBREX [Concomitant]
     Route: 065
  10. CELEBREX [Concomitant]
     Route: 065
  11. CYMBALTA [Concomitant]
     Route: 065
  12. CYMBALTA [Concomitant]
     Route: 065
  13. FOLIC ACID [Concomitant]
     Route: 065
  14. HUMIRA [Concomitant]
     Route: 065
  15. LYRICA [Concomitant]
     Route: 065
  16. LYRICA [Concomitant]
     Route: 065
  17. HEMOCYTE [Concomitant]
  18. AMITRIPTYLINE HCL [Concomitant]
  19. VITAMIN B-12 [Concomitant]
  20. UNKNOWN MEDICATION [Concomitant]
  21. CARBIDOPA [Concomitant]
  22. ROCEPHIN [Concomitant]
  23. DEPO-MEDROL [Concomitant]
     Route: 065

REACTIONS (20)
  - BRONCHITIS [None]
  - CHEST PAIN [None]
  - CONSTIPATION [None]
  - DEPRESSION [None]
  - DIZZINESS [None]
  - DRUG EFFECT DECREASED [None]
  - DRUG SCREEN NEGATIVE [None]
  - DYSPNOEA [None]
  - FATIGUE [None]
  - INSOMNIA [None]
  - IRRITABLE BOWEL SYNDROME [None]
  - NAUSEA [None]
  - NEUROPATHY PERIPHERAL [None]
  - PAIN IN EXTREMITY [None]
  - PERIRECTAL ABSCESS [None]
  - PHARYNGITIS [None]
  - SINUSITIS [None]
  - THERAPEUTIC RESPONSE DECREASED [None]
  - UTERINE HAEMORRHAGE [None]
  - WEIGHT INCREASED [None]
